FAERS Safety Report 12485303 (Version 2)
Quarter: 2016Q3

REPORT INFORMATION
  Report Type: Report from Study
  Country: AR (occurrence: AR)
  Receive Date: 20160621
  Receipt Date: 20160706
  Transmission Date: 20161109
  Serious: Yes (Other)
  Sender: FDA-Public Use
  Company Number: PHHY2016AR066914

PATIENT
  Age: 65 Year
  Sex: Female

DRUGS (3)
  1. DIOVAN [Suspect]
     Active Substance: VALSARTAN
     Dosage: 2 DF (160, UNITS NOT PROVIDED), QD
     Route: 065
  2. DIOVAN [Suspect]
     Active Substance: VALSARTAN
     Indication: HYPERTENSION
     Dosage: 2 DF (80, UNITS NOT PROVIDED), QD
     Route: 065
     Dates: start: 2013
  3. DIOVAN [Suspect]
     Active Substance: VALSARTAN
     Dosage: 1 DF (320, UNITS NOT PROVIDED), QD (SIX MONTHS AGO)
     Route: 065
     Dates: end: 201605

REACTIONS (5)
  - Fall [Recovered/Resolved]
  - Blood pressure increased [Not Recovered/Not Resolved]
  - Drug ineffective [Unknown]
  - Spinal fracture [Recovered/Resolved]
  - Hypotension [Not Recovered/Not Resolved]

NARRATIVE: CASE EVENT DATE: 20160501
